FAERS Safety Report 5328663-7 (Version None)
Quarter: 2007Q2

REPORT INFORMATION
  Report Type: 
  Country: None (occurrence: None)
  Receive Date: 20070518
  Receipt Date: 20070516
  Transmission Date: 20071010
  Serious: Yes (Other)
  Sender: FDA-Public Use
  Company Number: A0645810A

PATIENT
  Age: 61 Year
  Sex: Female
  Weight: 54.5 kg

DRUGS (3)
  1. WELLBUTRIN SR [Suspect]
     Indication: DEPRESSION
     Dosage: 450MG UNKNOWN
     Route: 048
     Dates: start: 20060125
  2. CYMBALTA [Suspect]
     Indication: DEPRESSION
     Route: 065
     Dates: end: 20060301
  3. LORAZEPAM [Concomitant]
     Dosage: 1MG UNKNOWN

REACTIONS (11)
  - CONFUSIONAL STATE [None]
  - CONVULSION [None]
  - FEELING HOT [None]
  - GRIMACING [None]
  - NAUSEA [None]
  - PAIN IN EXTREMITY [None]
  - POSTICTAL STATE [None]
  - SPEECH DISORDER [None]
  - TONGUE BITING [None]
  - URINARY TRACT INFECTION [None]
  - VOMITING [None]
